FAERS Safety Report 20203452 (Version 1)
Quarter: 2021Q4

REPORT INFORMATION
  Report Type: Spontaneous
  Country: HR (occurrence: HR)
  Receive Date: 20211218
  Receipt Date: 20211218
  Transmission Date: 20220303
  Serious: Yes (Hospitalization)
  Sender: FDA-Public Use
  Company Number: HR-SERVIER-S21013721

PATIENT

DRUGS (2)
  1. ONCASPAR [Suspect]
     Active Substance: PEGASPARGASE
     Indication: Acute lymphocytic leukaemia
     Dosage: 1878 IU
     Route: 042
     Dates: start: 20211031, end: 20211031
  2. ONCASPAR [Suspect]
     Active Substance: PEGASPARGASE
     Dosage: 1878 IU
     Route: 042
     Dates: start: 20211115, end: 20211115

REACTIONS (4)
  - Blood bilirubin increased [Not Recovered/Not Resolved]
  - Asthenia [Not Recovered/Not Resolved]
  - Food intolerance [Not Recovered/Not Resolved]
  - Malaise [Not Recovered/Not Resolved]

NARRATIVE: CASE EVENT DATE: 20211125
